FAERS Safety Report 17172648 (Version 2)
Quarter: 2020Q3

REPORT INFORMATION
  Report Type: Report from Study
  Country: US (occurrence: US)
  Receive Date: 20191219
  Receipt Date: 20200818
  Transmission Date: 20201102
  Serious: No
  Sender: FDA-Public Use
  Company Number: US-SA-2019SA348343

PATIENT

DRUGS (4)
  1. RELIEF [PHENYLEPHRINE HYDROCHLORIDE] [Concomitant]
     Indication: HYPERSENSITIVITY
  2. AMOXICILLIN. [Concomitant]
     Active Substance: AMOXICILLIN
  3. DUPILUMAB [Suspect]
     Active Substance: DUPILUMAB
     Indication: NASAL POLYPS
     Dosage: 300 MG, QOW
     Route: 058
     Dates: start: 2019
  4. RELIEF [PHENYLEPHRINE HYDROCHLORIDE] [Concomitant]
     Indication: NASAL CONGESTION

REACTIONS (4)
  - Arthralgia [Recovering/Resolving]
  - Joint stiffness [Recovering/Resolving]
  - Off label use [Unknown]
  - Nasal polypectomy [Unknown]
